FAERS Safety Report 9844396 (Version 2)
Quarter: 2014Q1

REPORT INFORMATION
  Report Type: Spontaneous
  Country: US (occurrence: US)
  Receive Date: 20140127
  Receipt Date: 20140131
  Transmission Date: 20141002
  Serious: Yes (Other)
  Sender: FDA-Public Use
  Company Number: CHPA2014US001202

PATIENT
  Age: 83 Year
  Sex: Male

DRUGS (2)
  1. PREVACID 24HR 15MG [Suspect]
     Indication: GASTROOESOPHAGEAL REFLUX DISEASE
     Dosage: 1 DF, BID
     Route: 048
     Dates: start: 2009
  2. PREVACID 24HR 15MG [Suspect]
     Indication: OFF LABEL USE

REACTIONS (4)
  - Lung infection [Not Recovered/Not Resolved]
  - Rash [Unknown]
  - Incorrect dose administered [Unknown]
  - Incorrect drug administration duration [Unknown]
